FAERS Safety Report 4802151-6 (Version None)
Quarter: 2005Q4

REPORT INFORMATION
  Report Type: 
  Country: None (occurrence: None)
  Receive Date: 20051017
  Receipt Date: 20051017
  Transmission Date: 20060501
  Serious: Yes (Other)
  Sender: FDA-Public Use
  Company Number: None

PATIENT
  Age: 41 Year
  Sex: Male

DRUGS (10)
  1. ZANAFLEX [Suspect]
     Indication: BACK PAIN
     Dosage: 4 MG QAM, 12-20 MG Q PM
     Dates: start: 20050309, end: 20050329
  2. PANTOPRAZOLE [Concomitant]
  3. SENNA [Concomitant]
  4. MYLANTA [Concomitant]
  5. HYDROMORPHONE [Concomitant]
  6. DOCUSATE [Concomitant]
  7. METHADONE [Concomitant]
  8. GABAPENTIN [Concomitant]
  9. ONDANSETRON [Concomitant]
  10. OXYBUTYNIN [Concomitant]

REACTIONS (7)
  - ABDOMINAL PAIN UPPER [None]
  - ALANINE AMINOTRANSFERASE INCREASED [None]
  - ASPARTATE AMINOTRANSFERASE INCREASED [None]
  - BACK PAIN [None]
  - GAMMA-GLUTAMYLTRANSFERASE INCREASED [None]
  - NAUSEA [None]
  - TREATMENT NONCOMPLIANCE [None]
